FAERS Safety Report 4370150-7 (Version None)
Quarter: 2004Q2

REPORT INFORMATION
  Report Type: 
  Country: None (occurrence: None)
  Receive Date: 20040603
  Receipt Date: 20040423
  Transmission Date: 20050107
  Serious: No
  Sender: FDA-Public Use
  Company Number: US-BRISTOL-MYERS SQUIBB COMPANY-12570370

PATIENT
  Age: 12 Year
  Sex: Female

DRUGS (2)
  1. ABILIFY [Suspect]
     Indication: BIPOLAR DISORDER
     Dosage: INITIAL DOSE: 2.5 MG/DAY, INC TO 5 MG/DAY, THEN 10 MG/DAY, THEN DEC TO 5 MG/DAY.
  2. DEPAKOTE [Interacting]

REACTIONS (6)
  - ANTICONVULSANT DRUG LEVEL INCREASED [None]
  - DRUG INTERACTION [None]
  - GAIT DISTURBANCE [None]
  - SEDATION [None]
  - SPEECH DISORDER [None]
  - TREATMENT NONCOMPLIANCE [None]
